FAERS Safety Report 13966403 (Version 2)
Quarter: 2017Q3

REPORT INFORMATION
  Report Type: Spontaneous
  Country: GB (occurrence: GB)
  Receive Date: 20170913
  Receipt Date: 20170915
  Transmission Date: 20171128
  Serious: No
  Sender: FDA-Public Use
  Company Number: GB-ASTRAZENECA-2017SE92788

PATIENT
  Age: 52 Year

DRUGS (1)
  1. TICAGRELOR. [Suspect]
     Active Substance: TICAGRELOR
     Dosage: DOSE UNKNOWN
     Route: 048

REACTIONS (6)
  - Frustration tolerance decreased [Unknown]
  - Dizziness [Unknown]
  - Angina pectoris [Unknown]
  - Panic attack [Unknown]
  - Anxiety [Unknown]
  - Blood urine present [Unknown]
